FAERS Safety Report 18806259 (Version 1)
Quarter: 2021Q1

REPORT INFORMATION
  Report Type: Spontaneous
  Country: HU (occurrence: HU)
  Receive Date: 20210129
  Receipt Date: 20210129
  Transmission Date: 20210419
  Serious: Yes (Other)
  Sender: FDA-Public Use
  Company Number: HU-TEVA-2021-HU-1873523

PATIENT
  Age: 27 Year
  Sex: Male
  Weight: 58 kg

DRUGS (3)
  1. VITAMIN C [Concomitant]
     Active Substance: ASCORBIC ACID
  2. INERTA 10 MG SOFT CAPSULE [Suspect]
     Active Substance: ISOTRETINOIN
     Indication: ACNE CONGLOBATA
     Dosage: 10 MILLIGRAM DAILY;
     Route: 048
     Dates: start: 202002, end: 20201102
  3. INERTA 10 MG SOFT CAPSULE [Suspect]
     Active Substance: ISOTRETINOIN
     Route: 048
     Dates: start: 20201103, end: 20210117

REACTIONS (2)
  - Photopsia [Not Recovered/Not Resolved]
  - Vitreous detachment [Unknown]

NARRATIVE: CASE EVENT DATE: 202010
